FAERS Safety Report 10185177 (Version 3)
Quarter: 2016Q1

REPORT INFORMATION
  Report Type: Spontaneous
  Country: JP (occurrence: JP)
  Receive Date: 20140521
  Receipt Date: 20160324
  Transmission Date: 20160525
  Serious: Yes (Death, Other)
  Sender: FDA-Public Use
  Company Number: PHJP2014JP000785

PATIENT
  Age: 86 Year
  Sex: Male
  Weight: 52 kg

DRUGS (45)
  1. PHENOBAL [Suspect]
     Active Substance: PHENOBARBITAL
     Dosage: 20 MG, TID
     Route: 048
     Dates: start: 20140224, end: 20140330
  2. FUROSEMIDE. [Concomitant]
     Active Substance: FUROSEMIDE
     Dosage: 20 MG, QD
     Route: 048
     Dates: start: 20140301, end: 20140310
  3. FUROSEMIDE. [Concomitant]
     Active Substance: FUROSEMIDE
     Dosage: 20 MG, QD
     Route: 042
     Dates: start: 20140225, end: 20140225
  4. GLUCONSAN K [Concomitant]
     Dosage: 3 G, TID
     Route: 048
     Dates: start: 20140326, end: 20140329
  5. MILMAG [Concomitant]
     Active Substance: MAGNESIUM HYDROXIDE
     Indication: CONSTIPATION
     Dosage: 4 ML, TID
     Route: 048
     Dates: start: 20140322, end: 20140404
  6. MUCOFILIN [Concomitant]
     Indication: PRODUCT USED FOR UNKNOWN INDICATION
     Dosage: UNK
     Route: 055
  7. TOPSYM [Concomitant]
     Indication: PRODUCT USED FOR UNKNOWN INDICATION
     Dosage: UNK
     Route: 061
  8. TEGRETOL [Suspect]
     Active Substance: CARBAMAZEPINE
     Dosage: 300 MG, BID
     Route: 048
     Dates: start: 20140309, end: 20140321
  9. FOSPHENYTOIN [Concomitant]
     Active Substance: FOSPHENYTOIN\FOSPHENYTOIN SODIUM
     Dosage: 750 MG, QD
     Route: 041
     Dates: start: 20140309, end: 20140309
  10. FUROSEMIDE. [Concomitant]
     Active Substance: FUROSEMIDE
     Dosage: 20 MG, BID
     Route: 048
     Dates: start: 20140226, end: 20140228
  11. THEO-DUR [Concomitant]
     Active Substance: THEOPHYLLINE ANHYDROUS
     Indication: CHRONIC OBSTRUCTIVE PULMONARY DISEASE
     Dosage: 100 MG, BID
     Route: 048
     Dates: end: 20140228
  12. LAMICTAL [Suspect]
     Active Substance: LAMOTRIGINE
     Dosage: 300 MG, QD
     Route: 048
     Dates: start: 20140324, end: 20140328
  13. PHENOBAL [Suspect]
     Active Substance: PHENOBARBITAL
     Indication: SEIZURE
     Dosage: 10 MG, BID
     Route: 048
     Dates: start: 20140220, end: 20140223
  14. ALEVIATIN [Suspect]
     Active Substance: PHENYTOIN SODIUM
     Indication: SEIZURE
     Dosage: 100 MG, BID
     Route: 048
     Dates: start: 20140328, end: 20140331
  15. ALEVIATIN [Suspect]
     Active Substance: PHENYTOIN SODIUM
     Dosage: 100 MG, TID
     Route: 048
     Dates: start: 20140401
  16. FUROSEMIDE. [Concomitant]
     Active Substance: FUROSEMIDE
     Indication: POLYURIA
     Dosage: 20 MG, QD
     Route: 048
     Dates: end: 20140225
  17. FUROSEMIDE. [Concomitant]
     Active Substance: FUROSEMIDE
     Dosage: 20 MG, BID
     Route: 048
     Dates: start: 20140311
  18. FUROSEMIDE. [Concomitant]
     Active Substance: FUROSEMIDE
     Indication: POLYURIA
     Dosage: 20 MG, QD
     Route: 042
     Dates: start: 20140220, end: 20140221
  19. FUROSEMIDE. [Concomitant]
     Active Substance: FUROSEMIDE
     Dosage: 20 MG, QD
     Route: 042
     Dates: start: 20140405
  20. TELBANS [Concomitant]
     Indication: CHRONIC OBSTRUCTIVE PULMONARY DISEASE
     Dosage: 100 MG, BID
     Route: 048
     Dates: start: 20140301, end: 20140404
  21. ZYLORIC [Concomitant]
     Active Substance: ALLOPURINOL
     Indication: HYPERURICAEMIA
     Dosage: 100 MG, QD
     Route: 048
     Dates: end: 20140321
  22. TEGRETOL [Suspect]
     Active Substance: CARBAMAZEPINE
     Dosage: 400 MG, BID
     Route: 048
     Dates: start: 20140322
  23. ALEVIATIN [Suspect]
     Active Substance: PHENYTOIN SODIUM
     Dosage: 250 MG, QD
     Route: 041
     Dates: start: 20140318, end: 20140321
  24. ALEVIATIN [Suspect]
     Active Substance: PHENYTOIN SODIUM
     Dosage: 500 MG, QD
     Route: 041
     Dates: start: 20140322, end: 20140322
  25. METHYCOBAL [Concomitant]
     Active Substance: METHYLCOBALAMIN
     Indication: VITAMIN SUPPLEMENTATION
     Dosage: 2 DF, TID
     Route: 048
     Dates: end: 20140321
  26. TEGRETOL [Suspect]
     Active Substance: CARBAMAZEPINE
     Indication: SEIZURE
     Dosage: 100 MG, BID
     Route: 048
     Dates: start: 20140224, end: 20140228
  27. LAMICTAL [Suspect]
     Active Substance: LAMOTRIGINE
     Indication: SEIZURE
     Dosage: 25 MG, QD
     Route: 048
     Dates: start: 20140309, end: 20140313
  28. LAMICTAL [Suspect]
     Active Substance: LAMOTRIGINE
     Dosage: 100 MG, BID
     Route: 048
     Dates: start: 20140317, end: 20140323
  29. FOSPHENYTOIN [Concomitant]
     Active Substance: FOSPHENYTOIN\FOSPHENYTOIN SODIUM
     Indication: SEIZURE
     Dosage: 750 MG, QD
     Route: 041
     Dates: start: 20140220, end: 20140221
  30. FOSPHENYTOIN [Concomitant]
     Active Substance: FOSPHENYTOIN\FOSPHENYTOIN SODIUM
     Dosage: 750 MG, QD
     Route: 041
     Dates: start: 20140301, end: 20140301
  31. HARNAL [Concomitant]
     Active Substance: TAMSULOSIN HYDROCHLORIDE
     Indication: DYSURIA
     Dosage: 0.2 MG, QD
     Route: 048
     Dates: end: 20140321
  32. MIYA-BM [Concomitant]
     Active Substance: CLOSTRIDIUM BUTYRICUM SPORES STRAIN M-55
     Indication: GASTROINTESTINAL DISORDER
     Dosage: 0.5 G, TID
     Route: 048
     Dates: start: 20140228, end: 20140404
  33. TAKEPRON [Concomitant]
     Active Substance: LANSOPRAZOLE
     Indication: PROPHYLAXIS
     Dosage: 30 MG, QD
     Route: 048
     Dates: start: 20140322, end: 20140404
  34. LAMICTAL [Suspect]
     Active Substance: LAMOTRIGINE
     Dosage: 50 MG, BID
     Route: 048
     Dates: start: 20140314, end: 20140316
  35. GLUCONSAN K [Concomitant]
     Indication: MINERAL SUPPLEMENTATION
     Dosage: 3 G, TID
     Route: 048
     Dates: start: 20140228, end: 20140303
  36. ALLOID [Concomitant]
     Indication: GASTRITIS
     Dosage: 20 ML, QD
     Route: 048
     Dates: start: 20140315, end: 20140404
  37. KEPPRA [Suspect]
     Active Substance: LEVETIRACETAM
     Indication: SEIZURE
     Dosage: 500 MG, BID
     Route: 048
     Dates: start: 20140220, end: 20140221
  38. ALEVIATIN [Suspect]
     Active Substance: PHENYTOIN SODIUM
     Indication: SEIZURE
     Dosage: 250 MG, QD
     Route: 041
     Dates: start: 20140220, end: 20140316
  39. ALEVIATIN [Suspect]
     Active Substance: PHENYTOIN SODIUM
     Dosage: 500 MG, QD
     Route: 041
     Dates: start: 20140317, end: 20140317
  40. ALEVIATIN [Suspect]
     Active Substance: PHENYTOIN SODIUM
     Dosage: 250 MG, QD
     Route: 041
     Dates: start: 20140323, end: 20140402
  41. SODIUM CHLORIDE. [Concomitant]
     Active Substance: SODIUM CHLORIDE
     Indication: ELECTROLYTE SUBSTITUTION THERAPY
     Dosage: 2 G, TID
     Route: 048
     Dates: start: 20140228, end: 20140403
  42. KALIMATE [Concomitant]
     Active Substance: CALCIUM POLYSTYRENE SULFONATE
     Indication: BLOOD POTASSIUM INCREASED
     Dosage: 1 DF, TID
     Route: 048
     Dates: start: 20140228, end: 20140401
  43. TEGRETOL [Suspect]
     Active Substance: CARBAMAZEPINE
     Dosage: 200 MG, BID
     Route: 048
     Dates: start: 20140301, end: 20140308
  44. KEPPRA [Suspect]
     Active Substance: LEVETIRACETAM
     Dosage: 750 MG, BID
     Route: 048
     Dates: start: 20140222
  45. BFLUID [Concomitant]
     Active Substance: AMINO ACIDS\DEXTROSE\ELECTROLYTES NOS\VITAMINS
     Indication: PRODUCT USED FOR UNKNOWN INDICATION
     Dosage: UNK
     Route: 065

REACTIONS (12)
  - Cardiac failure congestive [Fatal]
  - Pneumonia aspiration [Fatal]
  - Hypoxia [Fatal]
  - Rash [Recovering/Resolving]
  - Atrial fibrillation [Fatal]
  - Pyrexia [Fatal]
  - Pyrexia [Not Recovered/Not Resolved]
  - Respiratory rate decreased [Fatal]
  - Asphyxia [Fatal]
  - Erythema multiforme [Recovering/Resolving]
  - Cardiac arrest [Unknown]
  - Drug eruption [Not Recovered/Not Resolved]

NARRATIVE: CASE EVENT DATE: 20140301
